FAERS Safety Report 7607795-4 (Version None)
Quarter: 2011Q3

REPORT INFORMATION
  Report Type: 
  Country: None (occurrence: None)
  Receive Date: 20110714
  Receipt Date: 20110705
  Transmission Date: 20111222
  Serious: Yes (Other)
  Sender: FDA-Public Use
  Company Number: DE-AMGEN-DEUSP2011034693

PATIENT
  Age: 15 Year
  Sex: Male

DRUGS (2)
  1. PROXEN                             /00256201/ [Concomitant]
     Dosage: UNK
  2. ENBREL [Suspect]
     Indication: JUVENILE ARTHRITIS
     Dosage: 25 MG, WEEKLY
     Dates: start: 20110413

REACTIONS (1)
  - ARTHRITIS [None]
